FAERS Safety Report 8587678 (Version 2)
Quarter: 2012Q4

REPORT INFORMATION
  Report Type: 
  Country: US (occurrence: US)
  Receive Date: 20120531
  Receipt Date: 20121025
  Transmission Date: 20130627
  Serious: Yes (Death, Life-Threatening, Hospitalization, Disabling, Other)
  Sender: FDA-Public Use
  Company Number: PHEH2012US010955

PATIENT
  Age: 40 Year
  Sex: Female
  Weight: 70 kg

DRUGS (1)
  1. GLEEVEC [Suspect]
     Indication: GASTROINTESTINAL STROMAL TUMOUR
     Dosage: 400 mg to 800 mg
     Route: 048
     Dates: start: 20120224, end: 20120425

REACTIONS (10)
  - Hepatic congestion [Fatal]
  - Hepatic failure [Fatal]
  - Tumour necrosis [Fatal]
  - Neoplasm progression [Fatal]
  - Malignant neoplasm progression [Fatal]
  - Hydronephrosis [Unknown]
  - Hyponatraemia [Unknown]
  - Nausea [Unknown]
  - Abdominal pain [Unknown]
  - Swelling [Unknown]
